FAERS Safety Report 12079984 (Version 2)
Quarter: 2016Q1

REPORT INFORMATION
  Report Type: Spontaneous
  Country: JP (occurrence: JP)
  Receive Date: 20160216
  Receipt Date: 20160301
  Transmission Date: 20160526
  Serious: Yes (Hospitalization)
  Sender: FDA-Public Use
  Company Number: JP-GLAXOSMITHKLINE-JP2016JPN020776

PATIENT
  Age: 33 Year
  Sex: Male

DRUGS (5)
  1. LEVOFLOXACIN HEMIHYDRATE [Concomitant]
     Active Substance: LEVOFLOXACIN
     Dosage: 500 MG, QD
     Dates: start: 20160208
  2. RELENZA [Suspect]
     Active Substance: ZANAMIVIR
     Indication: INFLUENZA
     Dosage: 10 MG, BID
     Route: 055
     Dates: start: 20160208, end: 20160209
  3. LOXOPROFEN [Concomitant]
     Active Substance: LOXOPROFEN
     Dosage: 60 MG, TID
     Dates: start: 20160208
  4. RESPLEN [Concomitant]
     Active Substance: EPRAZINONE
     Dosage: 20 MG, TID
     Dates: start: 20160208
  5. THEOPHYLLINE [Concomitant]
     Active Substance: THEOPHYLLINE ANHYDROUS
     Dosage: 100 MG, TID
     Dates: start: 20160208

REACTIONS (6)
  - Viral infection [Recovered/Resolved]
  - Inflammation [Unknown]
  - Hyperthermia [Recovered/Resolved]
  - Haemoptysis [Unknown]
  - Vomiting [Recovered/Resolved]
  - Headache [Recovered/Resolved]

NARRATIVE: CASE EVENT DATE: 20160209
